FAERS Safety Report 5000779-4 (Version None)
Quarter: 2006Q2

REPORT INFORMATION
  Report Type: 
  Country: None (occurrence: None)
  Receive Date: 20060512
  Receipt Date: 20051027
  Transmission Date: 20061013
  Serious: Yes (Other)
  Sender: FDA-Public Use
  Company Number: US-MERCK-0510USA09998

PATIENT
  Age: 59 Year
  Sex: Male
  Weight: 80 kg

DRUGS (5)
  1. VIOXX [Suspect]
     Indication: ARTHRITIS
     Route: 048
     Dates: start: 19990826, end: 20010907
  2. AMBIEN [Concomitant]
     Route: 065
  3. VASOTEC [Concomitant]
     Indication: HYPERTENSION
     Route: 065
     Dates: start: 19920101
  4. NORVASC [Concomitant]
     Route: 065
     Dates: start: 19920101
  5. NEXIUM [Concomitant]
     Route: 065

REACTIONS (8)
  - CEREBROVASCULAR ACCIDENT [None]
  - CORONARY ARTERY DISEASE [None]
  - DYSPEPSIA [None]
  - DYSPNOEA [None]
  - HEART RATE IRREGULAR [None]
  - LIBIDO DECREASED [None]
  - MYOCARDIAL INFARCTION [None]
  - OEDEMA [None]
